FAERS Safety Report 20520710 (Version 3)
Quarter: 2022Q1

REPORT INFORMATION
  Report Type: Report from Study
  Country: BR (occurrence: BR)
  Receive Date: 20220225
  Receipt Date: 20220325
  Transmission Date: 20220423
  Serious: Yes (Hospitalization, Other)
  Sender: FDA-Public Use
  Company Number: BR-NOVARTISPH-NVSC2021BR184999

PATIENT
  Age: 45 Year
  Sex: Female

DRUGS (3)
  1. KISQALI [Suspect]
     Active Substance: RIBOCICLIB
     Indication: Breast cancer
     Dosage: 3 DF, QD
     Route: 048
     Dates: start: 20210123
  2. KISQALI [Suspect]
     Active Substance: RIBOCICLIB
     Dosage: 3 DOSAGE FORM
     Route: 065
     Dates: start: 20210125
  3. TAMOXIFEN [Concomitant]
     Active Substance: TAMOXIFEN
     Indication: Product used for unknown indication
     Dosage: UNK
     Route: 065

REACTIONS (43)
  - Kidney infection [Recovered/Resolved]
  - Metastases to lung [Unknown]
  - Metastases to spine [Unknown]
  - Metastases to liver [Unknown]
  - Breast cancer [Unknown]
  - Malignant neoplasm progression [Unknown]
  - Candida infection [Recovered/Resolved]
  - Candida infection [Recovered/Resolved]
  - Dry skin [Recovering/Resolving]
  - Nausea [Recovering/Resolving]
  - Dry mouth [Recovering/Resolving]
  - Headache [Recovering/Resolving]
  - Nodule [Unknown]
  - Feeling abnormal [Unknown]
  - Weight decreased [Unknown]
  - Lymph node calcification [Unknown]
  - Product dose omission issue [Unknown]
  - Condition aggravated [Unknown]
  - Memory impairment [Unknown]
  - Breast mass [Unknown]
  - Hepatic mass [Unknown]
  - Hypertension [Unknown]
  - Vomiting [Recovered/Resolved]
  - Vomiting [Unknown]
  - Dyspnoea [Unknown]
  - Dizziness [Unknown]
  - Malaise [Not Recovered/Not Resolved]
  - Neck pain [Unknown]
  - Retching [Not Recovered/Not Resolved]
  - Musculoskeletal pain [Unknown]
  - Back pain [Unknown]
  - Anxiety [Unknown]
  - Tension [Unknown]
  - Agitation [Unknown]
  - Paraesthesia [Not Recovered/Not Resolved]
  - Respiration abnormal [Not Recovered/Not Resolved]
  - Pain in extremity [Recovering/Resolving]
  - Hypersensitivity [Unknown]
  - Urinary tract infection [Recovering/Resolving]
  - Asthenia [Unknown]
  - Diarrhoea [Not Recovered/Not Resolved]
  - Abdominal pain lower [Not Recovered/Not Resolved]
  - Fatigue [Not Recovered/Not Resolved]

NARRATIVE: CASE EVENT DATE: 20210101
